FAERS Safety Report 5231167-3 (Version None)
Quarter: 2007Q1

REPORT INFORMATION
  Report Type: 
  Country: None (occurrence: None)
  Receive Date: 20070206
  Receipt Date: 20070124
  Transmission Date: 20070707
  Serious: Yes (Hospitalization, Disabling, Other)
  Sender: FDA-Public Use
  Company Number: US-ELI_LILLY_AND_COMPANY-US200701005017

PATIENT
  Sex: Male

DRUGS (2)
  1. CYMBALTA [Suspect]
     Indication: NECK PAIN
     Dosage: 60 MG, DAILY (1/D)
     Dates: start: 20050101
  2. OXYCODONE HCL [Concomitant]
     Indication: PAIN

REACTIONS (5)
  - APHASIA [None]
  - ATRIAL FIBRILLATION [None]
  - CEREBROVASCULAR ACCIDENT [None]
  - DYSMORPHISM [None]
  - MONOPLEGIA [None]
